FAERS Safety Report 8584514-9 (Version None)
Quarter: 2012Q3

REPORT INFORMATION
  Report Type: 
  Country: None (occurrence: None)
  Receive Date: 20120810
  Receipt Date: 20120807
  Transmission Date: 20120928
  Serious: Yes (Other)
  Sender: FDA-Public Use
  Company Number: US-PFIZER INC-2012193397

PATIENT
  Age: 58 Year
  Sex: Female
  Weight: 72.562 kg

DRUGS (3)
  1. CELEBREX [Suspect]
     Indication: PAIN
  2. CELEBREX [Suspect]
     Indication: BACK PAIN
     Dosage: 100 MG, WEEKLY
     Route: 048
     Dates: start: 20120701, end: 20120701
  3. AMBIEN [Concomitant]
     Indication: SLEEP DISORDER
     Dosage: 10 MG, (EVERY 3-4 DAYS)

REACTIONS (3)
  - ANGINA PECTORIS [None]
  - BACK PAIN [None]
  - PAIN [None]
